FAERS Safety Report 25185529 (Version 1)
Quarter: 2025Q2

REPORT INFORMATION
  Report Type: Spontaneous
  Country: GB (occurrence: GB)
  Receive Date: 20250410
  Receipt Date: 20250410
  Transmission Date: 20250717
  Serious: Yes (Other)
  Sender: ORGANON
  Company Number: None

PATIENT
  Age: 58 Year
  Sex: Female

DRUGS (4)
  1. MOMETASONE FUROATE [Suspect]
     Active Substance: MOMETASONE FUROATE
     Indication: Eczema
     Dates: start: 20230701, end: 20231206
  2. PROTOPIC [Suspect]
     Active Substance: TACROLIMUS
     Dates: start: 20230101, end: 20230612
  3. PROTOPIC [Concomitant]
     Active Substance: TACROLIMUS
  4. ELIDEL [Concomitant]
     Active Substance: PIMECROLIMUS

REACTIONS (24)
  - Topical steroid withdrawal reaction [Recovered/Resolved with Sequelae]
  - Skin lesion [Unknown]
  - Nerve injury [Recovered/Resolved]
  - Skin exfoliation [Not Recovered/Not Resolved]
  - Melanocytic naevus [Recovered/Resolved]
  - Menstruation delayed [Recovering/Resolving]
  - Temperature regulation disorder [Unknown]
  - Lymphadenopathy [Not Recovered/Not Resolved]
  - Steroid withdrawal syndrome [Recovering/Resolving]
  - Medication error [Unknown]
  - Urticaria [Recovered/Resolved]
  - Skin burning sensation [Recovering/Resolving]
  - Alopecia [Recovering/Resolving]
  - Anxiety [Recovered/Resolved]
  - Eye pruritus [Unknown]
  - Eye discharge [Not Recovered/Not Resolved]
  - Weight decreased [Recovered/Resolved]
  - Pruritus [Unknown]
  - Fatigue [Recovered/Resolved with Sequelae]
  - Skin weeping [Recovered/Resolved]
  - Insomnia [Recovered/Resolved with Sequelae]
  - Constipation [Recovered/Resolved]
  - Skin wrinkling [Not Recovered/Not Resolved]
  - Product use in unapproved indication [Unknown]
